FAERS Safety Report 9140869 (Version 1)
Quarter: 2013Q1

REPORT INFORMATION
  Report Type: Spontaneous
  Country: DE (occurrence: DE)
  Receive Date: 20130305
  Receipt Date: 20130305
  Transmission Date: 20140127
  Serious: Yes (Hospitalization)
  Sender: FDA-Public Use
  Company Number: DE-ABBOTT-13P-062-1055794-00

PATIENT
  Sex: Female

DRUGS (1)
  1. HUMIRA [Suspect]
     Indication: CROHN^S DISEASE
     Route: 058
     Dates: start: 20110926, end: 20121101

REACTIONS (3)
  - Gastrointestinal inflammation [Recovering/Resolving]
  - Pneumonia [Recovering/Resolving]
  - Peritonitis [Recovering/Resolving]
